FAERS Safety Report 12711912 (Version 2)
Quarter: 2016Q4

REPORT INFORMATION
  Report Type: Spontaneous
  Country: US (occurrence: US)
  Receive Date: 20160902
  Receipt Date: 20161101
  Transmission Date: 20170207
  Serious: Yes (Other)
  Sender: FDA-Public Use
  Company Number: US-ASTELLAS-2015US047862

PATIENT
  Age: 78 Year
  Sex: Male

DRUGS (1)
  1. XTANDI [Suspect]
     Active Substance: ENZALUTAMIDE
     Indication: PROSTATE CANCER
     Dosage: 160 MG, ONCE DAILY (04 CAPSULES OF 40 MG)
     Route: 048
     Dates: start: 20151118

REACTIONS (4)
  - General physical health deterioration [Unknown]
  - Drug dose omission [Unknown]
  - Memory impairment [Unknown]
  - Swelling [Unknown]

NARRATIVE: CASE EVENT DATE: 201608
